FAERS Safety Report 12616127 (Version 1)
Quarter: 2016Q3

REPORT INFORMATION
  Report Type: Spontaneous
  Country: AU (occurrence: AU)
  Receive Date: 20160802
  Receipt Date: 20160802
  Transmission Date: 20161109
  Serious: Yes (Hospitalization)
  Sender: FDA-Public Use
  Company Number: AU-VALIDUS PHARMACEUTICALS LLC-AU-2016VAL002324

PATIENT
  Age: 53 Year
  Sex: Female

DRUGS (1)
  1. CARBAMAZEPINE. [Suspect]
     Active Substance: CARBAMAZEPINE
     Indication: PRODUCT USED FOR UNKNOWN INDICATION
     Dosage: UNK

REACTIONS (9)
  - Atrial fibrillation [Unknown]
  - Pulmonary oedema [Unknown]
  - Anaemia [Unknown]
  - Toxic epidermal necrolysis [Unknown]
  - Diarrhoea [Unknown]
  - Sepsis [Unknown]
  - Corneal disorder [Unknown]
  - Medical device site infection [Unknown]
  - Osteomyelitis [Unknown]

NARRATIVE: CASE EVENT DATE: 1988
